FAERS Safety Report 5241449-7 (Version None)
Quarter: 2007Q1

REPORT INFORMATION
  Report Type: 
  Country: None (occurrence: None)
  Receive Date: 20070220
  Receipt Date: 20070212
  Transmission Date: 20070707
  Serious: Yes (Death)
  Sender: FDA-Public Use
  Company Number: US-AVENTIS-200710918US

PATIENT
  Sex: Female

DRUGS (9)
  1. LOVENOX [Suspect]
     Dosage: DOSE: ONE PREFILLED SYRINGE QD, DOSE UNKNOWN
     Dates: start: 20061220, end: 20070129
  2. DILANTIN [Concomitant]
  3. KEPPRA [Concomitant]
  4. PREDNISONE [Concomitant]
     Dosage: DOSE: UNK
  5. DILAUDID                           /00080902/ [Concomitant]
     Indication: PAIN
     Dosage: DOSE: 2 MG PRN
  6. VALPROIC ACID [Concomitant]
     Dosage: DOSE: UNK
     Dates: start: 20060901
  7. IMMUNOSUPPRESSIVE AGENTS [Concomitant]
     Indication: STEM CELL TRANSPLANT
     Dosage: DOSE: UNK
     Dates: start: 20060723
  8. TACROLIMUS [Concomitant]
     Dosage: DOSE: UNK
     Dates: start: 20060801
  9. UNKNOWN DRUG [Concomitant]
     Dosage: DOSE: UNK

REACTIONS (7)
  - BLOOD PRESSURE DECREASED [None]
  - COUGH [None]
  - DRUG INEFFECTIVE [None]
  - DYSPNOEA [None]
  - HYPOVENTILATION [None]
  - PULMONARY EMBOLISM [None]
  - TACHYCARDIA [None]
